FAERS Safety Report 4363605-2 (Version None)
Quarter: 2004Q2

REPORT INFORMATION
  Report Type: 
  Country: None (occurrence: None)
  Receive Date: 20040524
  Receipt Date: 20040524
  Transmission Date: 20050107
  Serious: Yes (Life-Threatening)
  Sender: FDA-Public Use
  Company Number: None

PATIENT
  Age: 23 Year
  Sex: Female
  Weight: 66 kg

DRUGS (6)
  1. INVANZ [Suspect]
     Dosage: 1 GM ONCE INTRAVENOUS
     Route: 042
     Dates: start: 20040303, end: 20040303
  2. INVANZ [Suspect]
     Dosage: 500MG ONCE INTRAVENOUS
     Route: 042
     Dates: start: 20040304, end: 20040304
  3. METRONIDAZOLE [Concomitant]
  4. PANTOPRAZOLE [Concomitant]
  5. SODIUM CHLORIDE INJ [Concomitant]
  6. HEPARIN [Concomitant]

REACTIONS (4)
  - CONVULSION [None]
  - HAEMODIALYSIS [None]
  - HEART RATE INCREASED [None]
  - RESPIRATORY ARREST [None]
